FAERS Safety Report 9758541 (Version 1)
Quarter: 2013Q4

REPORT INFORMATION
  Report Type: Spontaneous
  Country: US (occurrence: None)
  Receive Date: 20131216
  Receipt Date: 20131216
  Transmission Date: 20140711
  Serious: No
  Sender: FDA-Public Use
  Company Number: CABO-13002423

PATIENT
  Age: 43 Year
  Sex: Male
  Weight: 86 kg

DRUGS (1)
  1. COMETRIQ (CABOZANTINIB) CAPSULE [Suspect]
     Indication: MEDULLARY THYROID CANCER
     Dosage: 140 MG, QD. ORAL

REACTIONS (3)
  - Insomnia [None]
  - Musculoskeletal pain [None]
  - Palmar-plantar erythrodysaesthesia syndrome [None]
